FAERS Safety Report 7119896-8 (Version None)
Quarter: 2010Q4

REPORT INFORMATION
  Report Type: 
  Country: None (occurrence: None)
  Receive Date: 20101123
  Receipt Date: 20101004
  Transmission Date: 20110411
  Serious: No
  Sender: FDA-Public Use
  Company Number: US-BRISTOL-MYERS SQUIBB COMPANY-15317167

PATIENT
  Age: 52 Year
  Sex: Male
  Weight: 128 kg

DRUGS (5)
  1. ONGLYZA [Suspect]
  2. NASONEX [Concomitant]
  3. DIOVAN [Concomitant]
  4. HEPATITIS A VIRUS VACCINE [Concomitant]
  5. INFLUENZA VACCINE [Concomitant]

REACTIONS (2)
  - INSOMNIA [None]
  - RASH MACULO-PAPULAR [None]
